FAERS Safety Report 5046841-1 (Version None)
Quarter: 2006Q2

REPORT INFORMATION
  Report Type: 
  Country: None (occurrence: None)
  Receive Date: 20060630
  Receipt Date: 20060621
  Transmission Date: 20061013
  Serious: Yes (Hospitalization, Other)
  Sender: FDA-Public Use
  Company Number: 2006AP000469

PATIENT
  Age: 30 Year
  Sex: Male

DRUGS (13)
  1. VALPROATE SODIUM [Suspect]
     Indication: AFFECTIVE DISORDER
     Dosage: SEE IMAGE
     Route: 048
     Dates: end: 20020101
  2. VALPROATE SODIUM [Suspect]
     Indication: AFFECTIVE DISORDER
     Dosage: SEE IMAGE
     Route: 048
     Dates: start: 20020101
  3. VALPROATE SODIUM [Suspect]
     Indication: AFFECTIVE DISORDER
     Dosage: SEE IMAGE
     Route: 048
     Dates: start: 20020101
  4. KALETRA [Suspect]
     Indication: AUTOIMMUNE DISORDER
     Dosage: SEE IMAGE
     Route: 048
     Dates: start: 20020101
  5. KALETRA [Suspect]
     Indication: AUTOIMMUNE DISORDER
     Dosage: SEE IMAGE
     Route: 048
     Dates: start: 20020101
  6. AZITHROMYCIN [Concomitant]
  7. SULFAMETHOXAZOLE [Concomitant]
  8. TRIMETHOPRIM [Concomitant]
  9. TRAZODONE HCL [Concomitant]
  10. PAROXETINE HCL [Concomitant]
  11. SERTRALINE [Concomitant]
  12. LAMIVUDINE + ZIDOVUDINE [Concomitant]
  13. OLANZAPINE [Concomitant]

REACTIONS (4)
  - ANTICONVULSANT DRUG LEVEL BELOW THERAPEUTIC [None]
  - BIPOLAR DISORDER [None]
  - DRUG INTERACTION [None]
  - HYPOMANIA [None]
